FAERS Safety Report 25706358 (Version 1)
Quarter: 2025Q3

REPORT INFORMATION
  Report Type: Spontaneous
  Country: US (occurrence: None)
  Receive Date: 20250820
  Receipt Date: 20250820
  Transmission Date: 20251020
  Serious: Yes (Hospitalization)
  Sender: FDA-CTU
  Company Number: None

PATIENT
  Age: 39 Year
  Sex: Male
  Weight: 75.9 kg

DRUGS (3)
  1. FLUOROURACIL [Suspect]
     Active Substance: FLUOROURACIL
  2. BEVACIZUMAB [Suspect]
     Active Substance: BEVACIZUMAB
  3. ELOXATIN [Suspect]
     Active Substance: OXALIPLATIN

REACTIONS (3)
  - Dehydration [None]
  - Gastrointestinal stoma complication [None]
  - Postoperative ileus [None]

NARRATIVE: CASE EVENT DATE: 20250731
